FAERS Safety Report 24412084 (Version 1)
Quarter: 2024Q4

REPORT INFORMATION
  Report Type: Spontaneous
  Country: US (occurrence: US)
  Receive Date: 20241008
  Receipt Date: 20241008
  Transmission Date: 20250114
  Serious: No
  Sender: ROCHE
  Company Number: US-ROCHE-10000098088

PATIENT
  Sex: Female

DRUGS (1)
  1. RITUXAN [Suspect]
     Active Substance: RITUXIMAB
     Indication: Rheumatoid arthritis
     Dosage: 1 AND 14 DAY, AFTER THAT EVERY 6 MONTHS
     Route: 042
     Dates: start: 202210

REACTIONS (2)
  - Skin disorder [Unknown]
  - Pain in extremity [Unknown]
